FAERS Safety Report 9134092 (Version 2)
Quarter: 2013Q1

REPORT INFORMATION
  Report Type: Spontaneous
  Country: US (occurrence: US)
  Receive Date: 20130304
  Receipt Date: 20130318
  Transmission Date: 20140127
  Serious: Yes (Death)
  Sender: FDA-Public Use
  Company Number: US-BIOGENIDEC-2013BI019464

PATIENT
  Age: 41 Year
  Sex: Male

DRUGS (4)
  1. TYSABRI [Suspect]
     Indication: MULTIPLE SCLEROSIS
     Route: 042
     Dates: start: 20090724, end: 20130125
  2. AMBIEN [Concomitant]
  3. LEVITRA [Concomitant]
  4. ARICEPT [Concomitant]

REACTIONS (1)
  - Completed suicide [Fatal]
